FAERS Safety Report 13554920 (Version 4)
Quarter: 2018Q3

REPORT INFORMATION
  Report Type: Spontaneous
  Country: US (occurrence: US)
  Receive Date: 20170517
  Receipt Date: 20180817
  Transmission Date: 20181010
  Serious: Yes (Hospitalization, Other)
  Sender: FDA-Public Use
  Company Number: US-PFIZER INC-2017151953

PATIENT
  Age: 53 Year
  Sex: Male
  Weight: 124 kg

DRUGS (52)
  1. CRESTOR [Concomitant]
     Active Substance: ROSUVASTATIN CALCIUM
     Indication: BLOOD CHOLESTEROL ABNORMAL
     Dosage: 40 MG, 1X/DAY (AFTERNOON)
  2. TOPIRAMATE. [Concomitant]
     Active Substance: TOPIRAMATE
     Indication: SEIZURE
  3. COQ 10 [Concomitant]
     Active Substance: UBIDECARENONE
     Indication: CARDIAC DISORDER
     Dosage: 100 MG, 2X/DAY (MORNING AND NIGHT)
  4. FLAXSEED [Concomitant]
     Active Substance: FLAX SEED
     Dosage: 1000 MG, 2X/DAY (MORNING AND NIGHT)
  5. BROMELAIN [Concomitant]
     Active Substance: BROMELAINS
     Indication: PAIN
     Dosage: 500 MG, 2X/DAY (MORNING AND NIGHT)
  6. ZOFRAN [Concomitant]
     Active Substance: ONDANSETRON HYDROCHLORIDE
     Indication: NAUSEA
     Dosage: 8 MG, AS NEEDED
     Route: 060
  7. LYRICA [Suspect]
     Active Substance: PREGABALIN
     Indication: NEUROPATHY PERIPHERAL
     Dosage: 300 MG, 2X/DAY
     Route: 048
  8. LYRICA [Suspect]
     Active Substance: PREGABALIN
     Indication: MYALGIA
  9. NITROSTAT [Concomitant]
     Active Substance: NITROGLYCERIN
     Indication: ANGINA PECTORIS
     Dosage: 4 MG, AS NEEDED
  10. PRILOSEC [Concomitant]
     Active Substance: OMEPRAZOLE MAGNESIUM
     Indication: GASTROOESOPHAGEAL REFLUX DISEASE
     Dosage: 40 MG, 1X/DAY (DINNER)
  11. ZETIA [Concomitant]
     Active Substance: EZETIMIBE
     Indication: BLOOD CHOLESTEROL ABNORMAL
     Dosage: 10 MG, 1X/DAY (MORNING)
  12. COREG [Concomitant]
     Active Substance: CARVEDILOL
     Indication: HYPERTENSION
     Dosage: 25 MG, 2X/DAY (MORNING AND EVENING)
  13. BENADRYL [Concomitant]
     Active Substance: DIPHENHYDRAMINE HYDROCHLORIDE
     Indication: CRYOFIBRINOGENAEMIA
     Dosage: UNK
  14. VITAMIN B12 [Concomitant]
     Active Substance: CYANOCOBALAMIN
     Indication: NERVE INJURY
     Dosage: 1000 UG, 2X/DAY (MORNING AND NOON)
  15. TURMERIC [Concomitant]
     Active Substance: HERBALS\TURMERIC
     Indication: PAIN
     Dosage: 450 MG, 3X/DAY (MORNING, NOON, EVENING WITH SOMETHING HOT TO ACTIVATE)
  16. TURMERIC [Concomitant]
     Active Substance: HERBALS\TURMERIC
     Indication: INFLAMMATION
  17. NATTOKINASE [Concomitant]
     Active Substance: NATTOKINASE
     Indication: BLOOD DISORDER
     Dosage: 100 MG, 2X/DAY (MORNING AND NIGHT)
  18. FIORICET [Concomitant]
     Active Substance: ACETAMINOPHEN\BUTALBITAL\CAFFEINE
     Indication: HEADACHE
     Dosage: 1 DF, AS NEEDED (EVERY 6 HRS)
  19. ASPIRIN (E.C.) [Concomitant]
     Active Substance: ASPIRIN
     Indication: CARDIAC DISORDER
     Dosage: 81 MG, 1X/DAY (MORNING)
  20. NORTRIPTYLINE [Concomitant]
     Active Substance: NORTRIPTYLINE
     Indication: DEPRESSION
  21. BENADRYL [Concomitant]
     Active Substance: DIPHENHYDRAMINE HYDROCHLORIDE
     Indication: SYSTEMIC LUPUS ERYTHEMATOSUS
  22. B?50 COMPLEX [Concomitant]
     Indication: NERVE INJURY
     Dosage: 50 MG, 2X/DAY (MORNING AND NOON)
  23. NORTRIPTYLINE [Concomitant]
     Active Substance: NORTRIPTYLINE
     Indication: HEADACHE
     Dosage: 25 MG, 1X/DAY (BED TIME)
  24. RITUXAN [Concomitant]
     Active Substance: RITUXIMAB
     Indication: SYSTEMIC LUPUS ERYTHEMATOSUS
  25. TYLENOL [Concomitant]
     Active Substance: ACETAMINOPHEN
     Indication: SYSTEMIC LUPUS ERYTHEMATOSUS
  26. IMITREX [Concomitant]
     Active Substance: SUMATRIPTAN SUCCINATE
     Indication: MIGRAINE
     Dosage: 100 MG, AS NEEDED (EVERY 2 HR; MAX DOSE 2 IN 24HRS)
  27. LYRICA [Suspect]
     Active Substance: PREGABALIN
     Indication: PERIPHERAL NERVOUS SYSTEM FUNCTION TEST ABNORMAL
     Dosage: 300 MG, 2X/DAY
     Route: 048
     Dates: start: 2013
  28. LYRICA [Suspect]
     Active Substance: PREGABALIN
     Indication: NEURALGIA
  29. LOSARTAN POTASSIUM. [Concomitant]
     Active Substance: LOSARTAN POTASSIUM
     Indication: HYPERTENSION
     Dosage: 50 MG, 1X/DAY (MORNING)
  30. AMLODIPINE BESYLATE. [Concomitant]
     Active Substance: AMLODIPINE BESYLATE
     Indication: RAYNAUD^S PHENOMENON
     Dosage: 5 MG, 1X/DAY (MORNING)
  31. DOCUSATE [Concomitant]
     Active Substance: DOCUSATE
     Indication: CONSTIPATION
     Dosage: 100 MG, 3X/DAY (MORNING, NOON, EVENING)
  32. COLACE [Concomitant]
     Active Substance: DOCUSATE SODIUM
     Indication: CONSTIPATION
     Dosage: 100 MG, 3X/DAY (MORNING, NOON, EVENING)
  33. TYLENOL [Concomitant]
     Active Substance: ACETAMINOPHEN
     Indication: CRYOFIBRINOGENAEMIA
     Dosage: UNK
  34. FISH OIL [Concomitant]
     Active Substance: FISH OIL
     Dosage: 1000 MG, 2X/DAY (MORNING AND NIGHT)
  35. CYMBALTA [Concomitant]
     Active Substance: DULOXETINE HYDROCHLORIDE
     Indication: ARTHRALGIA
     Dosage: 60 MG, 2X/DAY (MORNING AND AFTERNOON)
  36. LYRICA [Suspect]
     Active Substance: PREGABALIN
     Indication: DIABETIC NEUROPATHY
  37. MIRALAX [Concomitant]
     Active Substance: POLYETHYLENE GLYCOL 3350
     Indication: CONSTIPATION
     Dosage: UNK, AS NEEDED (1 TO 2 CAPS FULL, UP TO 2X DAILY)
  38. RITUXAN [Concomitant]
     Active Substance: RITUXIMAB
     Indication: CRYOFIBRINOGENAEMIA
     Dosage: UNK (800+MG IV INFUSION)
     Route: 042
  39. JANUMET XR [Concomitant]
     Active Substance: METFORMIN HYDROCHLORIDE\SITAGLIPTIN PHOSPHATE
     Indication: TYPE 2 DIABETES MELLITUS
     Dosage: 1 DF, 2X/DAY
  40. FOLIC ACID. [Concomitant]
     Active Substance: FOLIC ACID
     Dosage: 1000 UG, 1X/DAY (MORNING)
  41. VITAMIN D3 [Concomitant]
     Active Substance: CHOLECALCIFEROL
     Dosage: 10000 IU, 1X/DAY (MORNING)
  42. ACIDOPHILUS [Concomitant]
     Active Substance: LACTOBACILLUS ACIDOPHILUS
     Indication: GASTROINTESTINAL PAIN
     Dosage: 10 MG, 2X/DAY (MORNING AND EVENING)
  43. MELATONIN [Concomitant]
     Active Substance: MELATONIN
     Indication: INSOMNIA
     Dosage: 5 MG, 1X/DAY
  44. IRON FERROUS SULFATE [Concomitant]
     Dosage: 1 DF, 3 TIMES A WEEK
  45. XARELTO [Concomitant]
     Active Substance: RIVAROXABAN
     Indication: ANTICOAGULANT THERAPY
     Dosage: 15 MG, 2X/DAY (MORNING AND DINNER)
  46. TOPIRAMATE. [Concomitant]
     Active Substance: TOPIRAMATE
     Indication: HEADACHE
     Dosage: 50 MG, 2X/DAY (BEDTIME AND MORNING)
  47. ABILIFY [Concomitant]
     Active Substance: ARIPIPRAZOLE
     Indication: DEPRESSION
     Dosage: 5 MG, 1X/DAY (AFTERNOON)
  48. GLIMEPIRIDE. [Concomitant]
     Active Substance: GLIMEPIRIDE
     Indication: DIABETES MELLITUS
     Dosage: 2 MG, 1X/DAY (MORNING)
  49. NITROGLYCERIN. [Concomitant]
     Active Substance: NITROGLYCERIN
     Dosage: 0.4 MG, UNK, (0.4 MG/HR PATCH)
     Route: 062
  50. SERRAPEPTASE [Concomitant]
     Active Substance: SERRAPEPTASE
     Indication: BLOOD DISORDER
     Dosage: 120000 IU, 2X/DAY
  51. VITAMIN C [Concomitant]
     Active Substance: ASCORBIC ACID
     Dosage: 500 MG, 3 TIMES A WEEK
  52. MODAFINIL. [Concomitant]
     Active Substance: MODAFINIL
     Dosage: 200 MG, 1X/DAY (IN THE MORNING)

REACTIONS (2)
  - Anaesthetic complication [Unknown]
  - Colorectal cancer [Recovering/Resolving]

NARRATIVE: CASE EVENT DATE: 20170428
